FAERS Safety Report 24427651 (Version 2)
Quarter: 2024Q4

REPORT INFORMATION
  Report Type: Spontaneous
  Country: FR (occurrence: FR)
  Receive Date: 20241011
  Receipt Date: 20241024
  Transmission Date: 20250115
  Serious: No
  Sender: ABBVIE
  Company Number: FR-ABBVIE-5961191

PATIENT

DRUGS (2)
  1. OZURDEX [Suspect]
     Active Substance: DEXAMETHASONE
     Indication: Product used for unknown indication
     Dosage: TIME INTERVAL: AS NECESSARY
     Route: 050
  2. OZURDEX [Suspect]
     Active Substance: DEXAMETHASONE
     Dosage: TIME INTERVAL: AS NECESSARY: DOSAGE FORM: PELLET
     Route: 050

REACTIONS (1)
  - No adverse event [Unknown]
